FAERS Safety Report 5510314-X (Version None)
Quarter: 2007Q4

REPORT INFORMATION
  Report Type: 
  Country: None (occurrence: None)
  Receive Date: 20071108
  Receipt Date: 20071029
  Transmission Date: 20080405
  Serious: Yes (Hospitalization)
  Sender: FDA-Public Use
  Company Number: FR-ABBOTT-07P-056-0422798-00

PATIENT
  Sex: Male

DRUGS (8)
  1. NORVIR [Suspect]
     Indication: HIV INFECTION
     Route: 048
     Dates: start: 20070511, end: 20070726
  2. DIDANOSINE [Suspect]
     Indication: HIV INFECTION
     Route: 048
     Dates: end: 20070726
  3. LAMIVUDINE [Suspect]
     Indication: HIV INFECTION
     Route: 048
     Dates: end: 20070726
  4. CITALOPRAM [Suspect]
     Indication: AFFECTIVE DISORDER
     Route: 048
  5. FOSAMPRENAVIR [Suspect]
     Indication: HIV INFECTION
     Route: 048
     Dates: start: 20070511, end: 20070716
  6. DIVALPROATE OF SODIUM [Suspect]
     Indication: AFFECTIVE DISORDER
     Route: 048
     Dates: start: 20070614
  7. TESTOSTERONE [Suspect]
     Indication: LIBIDO DISORDER
     Dates: start: 20070614, end: 20070726
  8. ATAZANAVIR SULFATE [Suspect]
     Indication: HIV INFECTION
     Route: 048
     Dates: start: 20070716, end: 20070726

REACTIONS (4)
  - BLISTER [None]
  - DYSHIDROSIS [None]
  - LIBIDO DISORDER [None]
  - URTICARIA [None]
